FAERS Safety Report 4722441-5 (Version None)
Quarter: 2005Q3

REPORT INFORMATION
  Report Type: 
  Country: None (occurrence: None)
  Receive Date: 20050720
  Receipt Date: 20050708
  Transmission Date: 20060218
  Serious: Yes (Other)
  Sender: FDA-Public Use
  Company Number: 2005099177

PATIENT
  Sex: Female
  Weight: 67.1324 kg

DRUGS (8)
  1. NEURONTIN [Suspect]
     Indication: VERTEBRAL INJURY
     Dosage: 1250 MG (1 D) ORAL
     Route: 048
  2. DITROPAN [Concomitant]
  3. SENOKOT [Concomitant]
  4. ZOCOR [Concomitant]
  5. BENADRYL [Concomitant]
  6. ASPIRIN [Concomitant]
  7. MULTIVITAMINS WITH MINERALS [Concomitant]
  8. ASCORBIC ACID [Concomitant]

REACTIONS (6)
  - DRUG ABUSER [None]
  - DRUG WITHDRAWAL SYNDROME [None]
  - LETHARGY [None]
  - SOMNOLENCE [None]
  - TOOTH DISORDER [None]
  - TOOTH LOSS [None]
